FAERS Safety Report 9217777 (Version 1)
Quarter: 2013Q2

REPORT INFORMATION
  Report Type: Spontaneous
  Country: US (occurrence: US)
  Receive Date: 20130408
  Receipt Date: 20130408
  Transmission Date: 20140414
  Serious: Yes (Other)
  Sender: FDA-Public Use
  Company Number: US-BAYER-2013-043467

PATIENT
  Age: 60 Year
  Sex: Female
  Weight: 65.76 kg

DRUGS (11)
  1. BETASERON [Suspect]
     Dosage: 0.3 MG, UNK
  2. DETROL LA [Concomitant]
     Dosage: 2 MG, UNK
  3. ASTEPRO [Concomitant]
     Dosage: UNK
  4. MELOXICAM [Concomitant]
     Dosage: 7.5 MG, UNK
  5. NEURONTIN [Concomitant]
     Dosage: 100 MG, UNK
  6. ALLEGRA [Concomitant]
     Dosage: 30 MG
  7. INDOMETHACIN [Concomitant]
     Dosage: 25 MG, UNK
  8. BACLOFEN [Concomitant]
     Dosage: 10 MG, UNK
  9. CRESTOR [Concomitant]
     Dosage: 20 MG, UNK
  10. AMPYRA [Concomitant]
     Dosage: 10 MG, UNK
  11. TYLENOL [PARACETAMOL] [Concomitant]
     Dosage: 325 MG, UNK

REACTIONS (1)
  - Multiple sclerosis relapse [Unknown]
